FAERS Safety Report 7943863-5 (Version None)
Quarter: 2011Q4

REPORT INFORMATION
  Report Type: 
  Country: None (occurrence: None)
  Receive Date: 20111128
  Receipt Date: 20111122
  Transmission Date: 20120403
  Serious: Yes (Hospitalization)
  Sender: FDA-Public Use
  Company Number: CA-ROCHE-1008496

PATIENT
  Sex: Female
  Weight: 97.5 kg

DRUGS (10)
  1. HYDROCHLOROTHIAZIDE [Concomitant]
  2. FOLIC ACID [Concomitant]
  3. ACTEMRA [Suspect]
     Indication: RHEUMATOID ARTHRITIS
     Route: 042
     Dates: start: 20101019
  4. VASOTEC [Concomitant]
  5. MULTI-VITAMIN [Concomitant]
  6. VITAMIN D [Concomitant]
  7. SYNTHROID [Concomitant]
  8. METHOTREXATE [Concomitant]
  9. CRESTOR [Concomitant]
  10. ACTONEL [Concomitant]

REACTIONS (1)
  - KNEE ARTHROPLASTY [None]
